FAERS Safety Report 11682244 (Version 2)
Quarter: 2015Q4

REPORT INFORMATION
  Report Type: Spontaneous
  Country: DE (occurrence: DE)
  Receive Date: 20151029
  Receipt Date: 20151029
  Transmission Date: 20160304
  Serious: Yes (Other)
  Sender: FDA-Public Use
  Company Number: PHHY2015DE139274

PATIENT
  Age: 52 Year
  Sex: Male

DRUGS (9)
  1. EVEROLIMUS [Interacting]
     Active Substance: EVEROLIMUS
     Indication: RENAL TRANSPLANT
     Route: 065
  2. ONCOVIN [Suspect]
     Active Substance: VINCRISTINE SULFATE
     Indication: LYMPHOMA
     Route: 065
  3. EVEROLIMUS [Interacting]
     Active Substance: EVEROLIMUS
     Indication: IMMUNOSUPPRESSION
  4. PREDNISOLONE. [Suspect]
     Active Substance: PREDNISOLONE
     Indication: LYMPHOMA
     Route: 065
  5. VORICONAZOLE. [Interacting]
     Active Substance: VORICONAZOLE
     Dosage: 300 MG, BID
     Route: 048
  6. RITUXIMAB [Suspect]
     Active Substance: RITUXIMAB
     Indication: LYMPHOMA
     Dosage: 375 MG/M2, UNK
     Route: 065
  7. CYCLOPHOSPHAMIDE. [Suspect]
     Active Substance: CYCLOPHOSPHAMIDE
     Indication: LYMPHOMA
     Route: 065
  8. DOXORUBICIN HYDROCHLORIDE. [Suspect]
     Active Substance: DOXORUBICIN HYDROCHLORIDE
     Indication: LYMPHOMA
     Route: 065
  9. VORICONAZOLE. [Interacting]
     Active Substance: VORICONAZOLE
     Indication: ASPERGILLOMA
     Dosage: 4 MG/KG, BID
     Route: 042

REACTIONS (6)
  - Urosepsis [Unknown]
  - Drug interaction [Unknown]
  - CD4 lymphocytes decreased [Unknown]
  - Neutropenia [Unknown]
  - Hypogammaglobulinaemia [Unknown]
  - Aspergilloma [Recovering/Resolving]
